FAERS Safety Report 22391230 (Version 1)
Quarter: 2023Q2

REPORT INFORMATION
  Report Type: Spontaneous
  Country: US (occurrence: US)
  Receive Date: 20230601
  Receipt Date: 20230601
  Transmission Date: 20230722
  Serious: Yes (Other)
  Sender: FDA-Public Use
  Company Number: US-ALKEM LABORATORIES LIMITED-US-ALKEM-2023-05777

PATIENT

DRUGS (1)
  1. TICAGRELOR [Interacting]
     Active Substance: TICAGRELOR
     Indication: Product used for unknown indication
     Dosage: UNK
     Route: 065

REACTIONS (4)
  - Acute kidney injury [Unknown]
  - Rhabdomyolysis [Unknown]
  - Drug interaction [Unknown]
  - Myopathy [Unknown]
